FAERS Safety Report 17510079 (Version 2)
Quarter: 2020Q1

REPORT INFORMATION
  Report Type: Spontaneous
  Country: US (occurrence: US)
  Receive Date: 20200306
  Receipt Date: 20200320
  Transmission Date: 20200409
  Serious: No
  Sender: FDA-Public Use
  Company Number: US-PFIZER INC-2020081981

PATIENT
  Age: 76 Year
  Sex: Female

DRUGS (1)
  1. PREMARIN [Suspect]
     Active Substance: ESTROGENS, CONJUGATED
     Dosage: 2 WEEKS, 3 TIMES A WEEK

REACTIONS (3)
  - Product use in unapproved indication [Unknown]
  - Oral herpes [Not Recovered/Not Resolved]
  - Off label use [Unknown]
